FAERS Safety Report 12792388 (Version 3)
Quarter: 2019Q2

REPORT INFORMATION
  Report Type: Spontaneous
  Country: US (occurrence: US)
  Receive Date: 20160929
  Receipt Date: 20190614
  Transmission Date: 20190711
  Serious: No
  Sender: FDA-Public Use
  Company Number: US-JNJFOC-20160917973

PATIENT
  Age: 31 Year
  Sex: Male

DRUGS (63)
  1. RISPERDAL [Suspect]
     Active Substance: RISPERIDONE
     Indication: ANXIETY
     Route: 048
     Dates: start: 201211, end: 201211
  2. RISPERDAL [Suspect]
     Active Substance: RISPERIDONE
     Indication: ANXIETY
     Route: 048
     Dates: start: 200605
  3. RISPERDAL [Suspect]
     Active Substance: RISPERIDONE
     Indication: PARANOIA
     Route: 048
     Dates: start: 201007, end: 201008
  4. RISPERDAL [Suspect]
     Active Substance: RISPERIDONE
     Indication: PARANOIA
     Route: 048
     Dates: start: 200907, end: 200908
  5. RISPERDAL [Suspect]
     Active Substance: RISPERIDONE
     Indication: AGITATION
     Dosage: IN VARYING DOSES OF 1 MG AND 2 MG
     Route: 048
     Dates: start: 200807, end: 200808
  6. RISPERDAL [Suspect]
     Active Substance: RISPERIDONE
     Indication: PSYCHOTIC DISORDER
     Route: 048
     Dates: start: 200605
  7. RISPERDAL [Suspect]
     Active Substance: RISPERIDONE
     Indication: MAJOR DEPRESSION
     Route: 048
     Dates: start: 201007, end: 201008
  8. RISPERDAL [Suspect]
     Active Substance: RISPERIDONE
     Indication: ANXIETY
     Dosage: IN VARYING DOSES OF 1 MG AND 2 MG
     Route: 048
     Dates: start: 200906, end: 200907
  9. RISPERDAL [Suspect]
     Active Substance: RISPERIDONE
     Indication: ANXIETY
     Route: 048
     Dates: start: 201007, end: 201008
  10. RISPERDAL [Suspect]
     Active Substance: RISPERIDONE
     Indication: ANXIETY
     Route: 048
     Dates: start: 200907, end: 200908
  11. RISPERDAL [Suspect]
     Active Substance: RISPERIDONE
     Indication: ANXIETY
     Route: 048
     Dates: start: 200708, end: 200710
  12. RISPERDAL [Suspect]
     Active Substance: RISPERIDONE
     Indication: SCHIZOAFFECTIVE DISORDER
     Dosage: IN VARYING DOSES OF 1 MG AND 2 MG
     Route: 048
     Dates: start: 200906, end: 200907
  13. RISPERDAL [Suspect]
     Active Substance: RISPERIDONE
     Indication: AGITATION
     Route: 048
     Dates: start: 200906, end: 200907
  14. RISPERDAL [Suspect]
     Active Substance: RISPERIDONE
     Indication: AGITATION
     Route: 048
     Dates: start: 200907, end: 200908
  15. RISPERDAL [Suspect]
     Active Substance: RISPERIDONE
     Indication: PSYCHOTIC DISORDER
     Route: 048
     Dates: start: 201007, end: 201008
  16. RISPERDAL [Suspect]
     Active Substance: RISPERIDONE
     Indication: POST-TRAUMATIC STRESS DISORDER
     Route: 048
     Dates: start: 201007, end: 201008
  17. RISPERDAL [Suspect]
     Active Substance: RISPERIDONE
     Indication: MAJOR DEPRESSION
     Route: 048
     Dates: start: 200906, end: 200907
  18. RISPERDAL [Suspect]
     Active Substance: RISPERIDONE
     Indication: ANXIETY
     Dosage: IN VARYING DOSES OF 1 MG AND 2 MG
     Route: 048
     Dates: start: 200807, end: 200808
  19. RISPERDAL [Suspect]
     Active Substance: RISPERIDONE
     Indication: PARANOIA
     Route: 048
     Dates: start: 200605
  20. RISPERDAL [Suspect]
     Active Substance: RISPERIDONE
     Indication: AGITATION
     Dosage: IN VARYING DOSES OF 1 MG AND 2 MG
     Route: 048
     Dates: start: 200906, end: 200907
  21. RISPERDAL [Suspect]
     Active Substance: RISPERIDONE
     Indication: PSYCHOTIC DISORDER
     Route: 048
     Dates: start: 200907, end: 200908
  22. RISPERDAL [Suspect]
     Active Substance: RISPERIDONE
     Indication: PSYCHOTIC DISORDER
     Route: 048
     Dates: start: 200505, end: 200512
  23. RISPERDAL [Suspect]
     Active Substance: RISPERIDONE
     Indication: POST-TRAUMATIC STRESS DISORDER
     Route: 048
     Dates: start: 201211, end: 201211
  24. RISPERDAL [Suspect]
     Active Substance: RISPERIDONE
     Indication: POST-TRAUMATIC STRESS DISORDER
     Route: 048
     Dates: start: 200708, end: 200710
  25. RISPERDAL [Suspect]
     Active Substance: RISPERIDONE
     Indication: MAJOR DEPRESSION
     Route: 048
     Dates: start: 200708, end: 200710
  26. RISPERDAL [Suspect]
     Active Substance: RISPERIDONE
     Indication: PARANOIA
     Route: 048
     Dates: start: 200708, end: 200710
  27. RISPERDAL [Suspect]
     Active Substance: RISPERIDONE
     Indication: SCHIZOAFFECTIVE DISORDER
     Route: 048
     Dates: start: 201211, end: 201211
  28. RISPERDAL [Suspect]
     Active Substance: RISPERIDONE
     Indication: SCHIZOAFFECTIVE DISORDER
     Route: 048
     Dates: start: 201007, end: 201008
  29. RISPERDAL [Suspect]
     Active Substance: RISPERIDONE
     Indication: SCHIZOAFFECTIVE DISORDER
     Route: 048
     Dates: start: 200605
  30. RISPERDAL [Suspect]
     Active Substance: RISPERIDONE
     Indication: MAJOR DEPRESSION
     Route: 048
     Dates: start: 200505, end: 200512
  31. RISPERDAL [Suspect]
     Active Substance: RISPERIDONE
     Indication: SCHIZOAFFECTIVE DISORDER
     Route: 048
     Dates: start: 200907, end: 200908
  32. RISPERDAL [Suspect]
     Active Substance: RISPERIDONE
     Indication: AGITATION
     Route: 048
     Dates: start: 201211, end: 201211
  33. RISPERDAL [Suspect]
     Active Substance: RISPERIDONE
     Indication: AGITATION
     Route: 048
     Dates: start: 201007, end: 201008
  34. RISPERDAL [Suspect]
     Active Substance: RISPERIDONE
     Indication: AGITATION
     Route: 048
     Dates: start: 200708, end: 200710
  35. RISPERDAL [Suspect]
     Active Substance: RISPERIDONE
     Indication: PSYCHOTIC DISORDER
     Route: 048
     Dates: start: 200906, end: 200907
  36. RISPERDAL [Suspect]
     Active Substance: RISPERIDONE
     Indication: ANXIETY
     Route: 048
     Dates: start: 200505, end: 200512
  37. RISPERDAL [Suspect]
     Active Substance: RISPERIDONE
     Indication: ANXIETY
     Route: 048
     Dates: start: 200906, end: 200907
  38. RISPERDAL [Suspect]
     Active Substance: RISPERIDONE
     Indication: PARANOIA
     Dosage: IN VARYING DOSES OF 1 MG AND 2 MG
     Route: 048
     Dates: start: 200807, end: 200808
  39. RISPERDAL [Suspect]
     Active Substance: RISPERIDONE
     Indication: SCHIZOAFFECTIVE DISORDER
     Dosage: IN VARYING DOSES OF 1 MG AND 2 MG
     Route: 048
     Dates: start: 200807, end: 200808
  40. RISPERDAL [Suspect]
     Active Substance: RISPERIDONE
     Indication: SCHIZOAFFECTIVE DISORDER
     Route: 048
     Dates: start: 200906, end: 200907
  41. RISPERDAL [Suspect]
     Active Substance: RISPERIDONE
     Indication: PSYCHOTIC DISORDER
     Route: 048
     Dates: start: 200708, end: 200710
  42. RISPERDAL [Suspect]
     Active Substance: RISPERIDONE
     Indication: PSYCHOTIC DISORDER
     Route: 048
     Dates: start: 201211, end: 201211
  43. RISPERDAL [Suspect]
     Active Substance: RISPERIDONE
     Indication: POST-TRAUMATIC STRESS DISORDER
     Dosage: IN VARYING DOSES OF 1 MG AND 2 MG
     Route: 048
     Dates: start: 200807, end: 200808
  44. RISPERDAL [Suspect]
     Active Substance: RISPERIDONE
     Indication: POST-TRAUMATIC STRESS DISORDER
     Route: 048
     Dates: start: 200605
  45. RISPERDAL [Suspect]
     Active Substance: RISPERIDONE
     Indication: POST-TRAUMATIC STRESS DISORDER
     Route: 048
     Dates: start: 200505, end: 200512
  46. RISPERDAL [Suspect]
     Active Substance: RISPERIDONE
     Indication: MAJOR DEPRESSION
     Route: 048
     Dates: start: 201211, end: 201211
  47. RISPERDAL [Suspect]
     Active Substance: RISPERIDONE
     Indication: MAJOR DEPRESSION
     Route: 048
     Dates: start: 200605
  48. RISPERDAL [Suspect]
     Active Substance: RISPERIDONE
     Indication: PARANOIA
     Dosage: IN VARYING DOSES OF 1 MG AND 2 MG
     Route: 048
     Dates: start: 200906, end: 200907
  49. RISPERDAL [Suspect]
     Active Substance: RISPERIDONE
     Indication: PARANOIA
     Route: 048
     Dates: start: 201211, end: 201211
  50. RISPERDAL [Suspect]
     Active Substance: RISPERIDONE
     Indication: PARANOIA
     Route: 048
     Dates: start: 200906, end: 200907
  51. RISPERDAL [Suspect]
     Active Substance: RISPERIDONE
     Indication: SCHIZOAFFECTIVE DISORDER
     Route: 048
     Dates: start: 200505, end: 200512
  52. RISPERDAL [Suspect]
     Active Substance: RISPERIDONE
     Indication: SCHIZOAFFECTIVE DISORDER
     Route: 048
     Dates: start: 200708, end: 200710
  53. RISPERDAL [Suspect]
     Active Substance: RISPERIDONE
     Indication: AGITATION
     Route: 048
     Dates: start: 200605
  54. RISPERDAL [Suspect]
     Active Substance: RISPERIDONE
     Indication: AGITATION
     Route: 048
     Dates: start: 200505, end: 200512
  55. RISPERDAL [Suspect]
     Active Substance: RISPERIDONE
     Indication: PSYCHOTIC DISORDER
     Dosage: IN VARYING DOSES OF 1 MG AND 2 MG
     Route: 048
     Dates: start: 200906, end: 200907
  56. RISPERDAL [Suspect]
     Active Substance: RISPERIDONE
     Indication: PSYCHOTIC DISORDER
     Dosage: IN VARYING DOSES OF 1 MG AND 2 MG
     Route: 048
     Dates: start: 200807, end: 200808
  57. RISPERDAL [Suspect]
     Active Substance: RISPERIDONE
     Indication: POST-TRAUMATIC STRESS DISORDER
     Route: 048
     Dates: start: 200906, end: 200907
  58. RISPERDAL [Suspect]
     Active Substance: RISPERIDONE
     Indication: POST-TRAUMATIC STRESS DISORDER
     Route: 048
     Dates: start: 200907, end: 200908
  59. RISPERDAL [Suspect]
     Active Substance: RISPERIDONE
     Indication: MAJOR DEPRESSION
     Dosage: IN VARYING DOSES OF 1 MG AND 2 MG
     Route: 048
     Dates: start: 200807, end: 200808
  60. RISPERDAL [Suspect]
     Active Substance: RISPERIDONE
     Indication: PARANOIA
     Route: 048
     Dates: start: 200505, end: 200512
  61. RISPERDAL [Suspect]
     Active Substance: RISPERIDONE
     Indication: POST-TRAUMATIC STRESS DISORDER
     Dosage: IN VARYING DOSES OF 1 MG AND 2 MG
     Route: 048
     Dates: start: 200906, end: 200907
  62. RISPERDAL [Suspect]
     Active Substance: RISPERIDONE
     Indication: MAJOR DEPRESSION
     Route: 048
     Dates: start: 200907, end: 200908
  63. RISPERDAL [Suspect]
     Active Substance: RISPERIDONE
     Indication: MAJOR DEPRESSION
     Dosage: IN VARYING DOSES OF 1 MG AND 2 MG
     Route: 048
     Dates: start: 200906, end: 200907

REACTIONS (3)
  - Somnolence [Unknown]
  - Abnormal weight gain [Unknown]
  - Sedation [Unknown]

NARRATIVE: CASE EVENT DATE: 200906
